FAERS Safety Report 9006511 (Version 1)
Quarter: 2013Q1

REPORT INFORMATION
  Report Type: Spontaneous
  Country: CA (occurrence: CA)
  Receive Date: 20130110
  Receipt Date: 20130110
  Transmission Date: 20140127
  Serious: Yes (Other)
  Sender: FDA-Public Use
  Company Number: CA-ELI_LILLY_AND_COMPANY-CA201301000821

PATIENT
  Age: 79 Year
  Sex: Female

DRUGS (5)
  1. FORTEO [Suspect]
     Indication: OSTEOPOROSIS
     Dosage: 20 UG, QD
     Route: 058
     Dates: start: 20110926
  2. CALCIUM [Concomitant]
  3. VITAMIN D [Concomitant]
  4. TYLENOL EXTRA STRENGTH [Concomitant]
  5. HYZAAR [Concomitant]

REACTIONS (2)
  - Pulmonary embolism [Recovered/Resolved]
  - Arthralgia [Not Recovered/Not Resolved]
